FAERS Safety Report 12276104 (Version 1)
Quarter: 2016Q2

REPORT INFORMATION
  Report Type: Spontaneous
  Country: CN (occurrence: CN)
  Receive Date: 20160418
  Receipt Date: 20160418
  Transmission Date: 20160815
  Serious: Yes (Other)
  Sender: FDA-Public Use
  Company Number: CN-BAYER-2016-071859

PATIENT
  Age: 67 Year
  Sex: Male
  Weight: 55 kg

DRUGS (1)
  1. IOPROMIDE [Suspect]
     Active Substance: IOPROMIDE
     Indication: ABDOMINAL PAIN
     Dosage: 65 ML, ONCE
     Route: 042
     Dates: start: 20151021, end: 20151021

REACTIONS (2)
  - Tachypnoea [Recovering/Resolving]
  - Flushing [Recovering/Resolving]

NARRATIVE: CASE EVENT DATE: 20151021
